FAERS Safety Report 19432557 (Version 1)
Quarter: 2021Q2

REPORT INFORMATION
  Report Type: Spontaneous
  Country: TR (occurrence: TR)
  Receive Date: 20210617
  Receipt Date: 20210617
  Transmission Date: 20210717
  Serious: Yes (Death, Other)
  Sender: FDA-Public Use
  Company Number: TR-TOLMAR, INC.-21TR028110

PATIENT
  Age: 69 Year
  Sex: Male

DRUGS (6)
  1. ZOLEDRONIC ACID [Suspect]
     Active Substance: ZOLEDRONIC ACID
     Indication: HORMONE-REFRACTORY PROSTATE CANCER
     Dosage: 4 MILLIGRAM, EVERY 28 DAYS
     Dates: start: 201809
  2. DOCETAXEL. [Suspect]
     Active Substance: DOCETAXEL
     Indication: MALIGNANT NEOPLASM PROGRESSION
     Dosage: 75 MILLIGRAM PER SQUARE METRE
  3. ELIGARD [Suspect]
     Active Substance: LEUPROLIDE ACETATE
     Indication: PROSTATE CANCER
     Dosage: 22.5 MILLIGRAM, UNKNOWN FREQUENCY
  4. XTANDI [Suspect]
     Active Substance: ENZALUTAMIDE
     Indication: HORMONE-REFRACTORY PROSTATE CANCER
     Dosage: 160 MILLIGRAM, QD
     Route: 048
     Dates: start: 201809
  5. ALFUZOSIN [Suspect]
     Active Substance: ALFUZOSIN
     Indication: MICTURITION URGENCY
     Dosage: 10 MILLIGRAM, UNKNOWN FREQUENCY
     Dates: start: 201708
  6. ABIRATERONE. [Suspect]
     Active Substance: ABIRATERONE ACETATE
     Indication: PRODUCT USED FOR UNKNOWN INDICATION
     Dosage: UNK
     Dates: start: 202102

REACTIONS (8)
  - Death [Fatal]
  - Neutropenia [Unknown]
  - Fatigue [Unknown]
  - Malignant neoplasm progression [Unknown]
  - Pancreatitis [Unknown]
  - Gynaecomastia [Unknown]
  - Thrombocytopenia [Unknown]
  - Hepatitis [Unknown]
